FAERS Safety Report 4429745-4 (Version None)
Quarter: 2004Q3

REPORT INFORMATION
  Report Type: 
  Country: None (occurrence: None)
  Receive Date: 20040816
  Receipt Date: 20040804
  Transmission Date: 20050211
  Serious: Yes (Other)
  Sender: FDA-Public Use
  Company Number: HQWYE533620APR04

PATIENT
  Age: 60 Year
  Sex: Female

DRUGS (1)
  1. EFFEXOR XR [Suspect]
     Indication: DEPRESSION
     Dosage: 75 MG/CAPS, ORAL
     Route: 048
     Dates: end: 20040101

REACTIONS (1)
  - PNEUMONITIS [None]
